FAERS Safety Report 5952050-1 (Version None)
Quarter: 2008Q4

REPORT INFORMATION
  Report Type: 
  Country: None (occurrence: None)
  Receive Date: 20081113
  Receipt Date: 20080129
  Transmission Date: 20090506
  Serious: No
  Sender: FDA-Public Use
  Company Number: A0706080A

PATIENT
  Sex: Male

DRUGS (20)
  1. COREG [Suspect]
     Indication: HYPERTENSION
     Route: 048
  2. COREG CR [Suspect]
     Indication: HYPERTENSION
     Dosage: 20MG PER DAY
     Route: 048
     Dates: start: 20070101
  3. LOTREL [Concomitant]
  4. MICARDIS [Concomitant]
  5. NIASPAN [Concomitant]
  6. ZOCOR [Concomitant]
  7. TRILEPTAL [Concomitant]
  8. ASPIRIN [Concomitant]
  9. MULTI-VITAMIN [Concomitant]
  10. ALPHA-LIPOIC ACID [Concomitant]
  11. BILBERRY [Concomitant]
  12. CALCIUM [Concomitant]
  13. MAGNESIUM SULFATE [Concomitant]
  14. VITAMIN D [Concomitant]
  15. LOVAZA [Concomitant]
  16. COENZYME Q10 [Concomitant]
  17. PRANDIN [Concomitant]
  18. CHROMIUM PICOLINATE [Concomitant]
  19. UNKNOWN SUPPLEMENT [Concomitant]
  20. SELENIUM [Concomitant]

REACTIONS (1)
  - ALOPECIA [None]
